FAERS Safety Report 5494487-3 (Version None)
Quarter: 2007Q4

REPORT INFORMATION
  Report Type: 
  Country: None (occurrence: None)
  Receive Date: 20071024
  Receipt Date: 20071015
  Transmission Date: 20080405
  Serious: Yes (Disabling)
  Sender: FDA-Public Use
  Company Number: DK-ABBOTT-07P-044-0420789-00

PATIENT
  Age: 71 Year
  Sex: Female

DRUGS (9)
  1. DEPAKINE TABLETS PR [Suspect]
     Indication: EPILEPSY
     Route: 048
     Dates: start: 20070207, end: 20070717
  2. CLOPIDOGREL [Interacting]
     Indication: MYOCARDIAL ISCHAEMIA
     Route: 048
     Dates: start: 20060901
  3. CLOPIDOGREL [Interacting]
     Indication: CEREBRAL INFARCTION
  4. ISOSORBIDE MONONITRATE [Concomitant]
     Indication: DRUG USE FOR UNKNOWN INDICATION
     Route: 048
  5. FUROSEMIDE [Concomitant]
     Indication: DRUG USE FOR UNKNOWN INDICATION
     Route: 048
  6. POTASSIUM CHLORIDE [Concomitant]
     Indication: DRUG USE FOR UNKNOWN INDICATION
     Route: 048
  7. TELMISARTAN [Concomitant]
     Indication: DRUG USE FOR UNKNOWN INDICATION
     Route: 048
  8. SIMVASTATIN [Concomitant]
     Indication: DRUG USE FOR UNKNOWN INDICATION
     Route: 048
  9. ACETYLSALICYLIC ACID SRT [Concomitant]
     Indication: DRUG USE FOR UNKNOWN INDICATION
     Route: 048

REACTIONS (4)
  - ALOPECIA [None]
  - COLITIS COLLAGENOUS [None]
  - DIARRHOEA [None]
  - DRUG INTERACTION [None]
